FAERS Safety Report 13867434 (Version 1)
Quarter: 2017Q3

REPORT INFORMATION
  Report Type: Spontaneous
  Country: US (occurrence: None)
  Receive Date: 20170814
  Receipt Date: 20170814
  Transmission Date: 20171127
  Serious: No
  Sender: FDA-Public Use
  Company Number: None

PATIENT
  Sex: Female

DRUGS (1)
  1. COPAXONE [Suspect]
     Active Substance: GLATIRAMER ACETATE
     Indication: PRODUCT USED FOR UNKNOWN INDICATION
     Dosage: 40 MG THREE TIMES  A WEEK SQ
     Route: 058
     Dates: start: 20170628, end: 20170809

REACTIONS (4)
  - Injection site mass [None]
  - Pain [None]
  - Injection site rash [None]
  - Palpitations [None]
